FAERS Safety Report 5238576-7 (Version None)
Quarter: 2007Q1

REPORT INFORMATION
  Report Type: 
  Country: None (occurrence: None)
  Receive Date: 20070214
  Receipt Date: 20070214
  Transmission Date: 20070707
  Serious: Yes (Hospitalization)
  Sender: FDA-Public Use
  Company Number: None

PATIENT
  Age: 76 Year
  Sex: Male
  Weight: 55.6 kg

DRUGS (2)
  1. HYDROMORPHONE HCL [Suspect]
     Indication: OPEN REDUCTION OF FRACTURE
     Dosage: 1MG  IV
     Route: 042
     Dates: start: 20061129
  2. HYDROMORPHONE HCL [Suspect]
     Indication: PROCEDURAL PAIN
     Dosage: 1MG  IV
     Route: 042
     Dates: start: 20061129

REACTIONS (2)
  - PO2 DECREASED [None]
  - RESPIRATORY DISTRESS [None]
